FAERS Safety Report 10966138 (Version 1)
Quarter: 2015Q1

REPORT INFORMATION
  Report Type: Spontaneous
  Country: None (occurrence: None)
  Receive Date: 20150226
  Receipt Date: 20150226
  Transmission Date: 20150721
  Serious: No
  Sender: FDA-Public Use
  Company Number: TPA2010A04674

PATIENT
  Age: 72 Year
  Sex: Female
  Weight: 90.72 kg

DRUGS (4)
  1. ULORIC [Suspect]
     Active Substance: FEBUXOSTAT
     Indication: GOUT
     Route: 048
     Dates: start: 2010
  2. BENICAR [Concomitant]
     Active Substance: OLMESARTAN MEDOXOMIL
  3. LASIX [Concomitant]
     Active Substance: FUROSEMIDE
  4. POTASSIUM (POTASSIUM) [Concomitant]
     Active Substance: POTASSIUM

REACTIONS (2)
  - Gout [None]
  - Alopecia [None]

NARRATIVE: CASE EVENT DATE: 201006
